FAERS Safety Report 23363558 (Version 4)
Quarter: 2024Q2

REPORT INFORMATION
  Report Type: Report from Study
  Country: US (occurrence: US)
  Receive Date: 20240103
  Receipt Date: 20240605
  Transmission Date: 20240716
  Serious: Yes (Hospitalization, Other)
  Sender: FDA-Public Use
  Company Number: US-ABBVIE-5566542

PATIENT
  Age: 57 Year
  Sex: Female

DRUGS (1)
  1. RINVOQ [Suspect]
     Active Substance: UPADACITINIB
     Indication: Rheumatoid arthritis
     Route: 048
     Dates: start: 20221130, end: 20231218

REACTIONS (4)
  - Knee operation [Not Recovered/Not Resolved]
  - Ankle arthroplasty [Not Recovered/Not Resolved]
  - Arthropathy [Not Recovered/Not Resolved]
  - Limb reconstructive surgery [Not Recovered/Not Resolved]

NARRATIVE: CASE EVENT DATE: 20231222
